FAERS Safety Report 8229351-X (Version None)
Quarter: 2012Q1

REPORT INFORMATION
  Report Type: 
  Country: None (occurrence: None)
  Receive Date: 20120322
  Receipt Date: 20120316
  Transmission Date: 20120608
  Serious: Yes (Hospitalization)
  Sender: FDA-Public Use
  Company Number: US-GILEAD-2012-0050814

PATIENT
  Sex: Female

DRUGS (21)
  1. OMEPRAZOLE [Concomitant]
  2. LEVOTHYROXINE SODIUM [Concomitant]
  3. LORATADINE [Concomitant]
  4. ARANESP [Concomitant]
  5. VENTAVIS [Concomitant]
  6. ZOCOR [Concomitant]
  7. ASPIRIN [Concomitant]
  8. TYLENOL (CAPLET) [Concomitant]
  9. METOPROLOL SUCCINATE [Concomitant]
  10. QUININE SULFATE [Concomitant]
  11. ENALAPRIL [Concomitant]
  12. FOSAMAX [Concomitant]
  13. FISH OIL [Concomitant]
  14. LEVEMIR [Concomitant]
  15. LASIX [Concomitant]
  16. NOVOLOG [Concomitant]
  17. FERROUS SULFATE TAB [Concomitant]
  18. HYDRALAZINE HCL [Concomitant]
  19. CALCIUM CARBONATE [Concomitant]
  20. LETAIRIS [Suspect]
     Indication: PRODUCT USED FOR UNKNOWN INDICATION
     Dosage: 5 MG, UNK
     Route: 048
     Dates: start: 20110919, end: 20120209
  21. ZOLOFT [Concomitant]

REACTIONS (2)
  - ABDOMINAL DISCOMFORT [None]
  - ABDOMINAL PAIN [None]
